FAERS Safety Report 8162038-0 (Version None)
Quarter: 2012Q1

REPORT INFORMATION
  Report Type: 
  Country: None (occurrence: None)
  Receive Date: 20120224
  Receipt Date: 20110518
  Transmission Date: 20120608
  Serious: No
  Sender: FDA-Public Use
  Company Number: US-BRISTOL-MYERS SQUIBB COMPANY-15758923

PATIENT
  Age: 83 Year
  Sex: Female

DRUGS (4)
  1. LANTUS [Suspect]
     Indication: TYPE 2 DIABETES MELLITUS
     Dosage: 1DF:8 UNITS PARENTERAL,INJ,SOLN 100 IU/ML
     Route: 058
     Dates: start: 20080101, end: 20110415
  2. METFORMIN HCL [Suspect]
     Route: 065
     Dates: end: 20110415
  3. APIDRA SOLOSTAR [Suspect]
     Indication: TYPE 2 DIABETES MELLITUS
     Dosage: SOLOSTAR
     Dates: start: 20080101, end: 20110415
  4. AMARYL [Suspect]
     Indication: TYPE 2 DIABETES MELLITUS
     Route: 048
     Dates: start: 20080101, end: 20110415

REACTIONS (1)
  - GLYCOSYLATED HAEMOGLOBIN INCREASED [None]
